FAERS Safety Report 9011900 (Version 4)
Quarter: 2013Q1

REPORT INFORMATION
  Report Type: Spontaneous
  Country: US (occurrence: US)
  Receive Date: 20130114
  Receipt Date: 20130215
  Transmission Date: 20140127
  Serious: Yes (Hospitalization)
  Sender: FDA-Public Use
  Company Number: US-BIOGENIDEC-2013BI002216

PATIENT
  Age: 80 Year
  Sex: Female

DRUGS (2)
  1. TYSABRI [Suspect]
     Indication: MULTIPLE SCLEROSIS
     Route: 042
     Dates: start: 20070827
  2. HORMONE PILLS (NOS) [Concomitant]

REACTIONS (5)
  - Migraine [Recovered/Resolved]
  - Dehydration [Recovered/Resolved]
  - Abasia [Recovered/Resolved]
  - Tendon disorder [Recovered/Resolved]
  - Arthritis [Not Recovered/Not Resolved]
